FAERS Safety Report 21380581 (Version 1)
Quarter: 2022Q3

REPORT INFORMATION
  Report Type: Spontaneous
  Country: US (occurrence: None)
  Receive Date: 20220923
  Receipt Date: 20220923
  Transmission Date: 20221027
  Serious: No
  Sender: FDA-Public Use
  Company Number: None

PATIENT
  Sex: Female

DRUGS (2)
  1. COSENTYX [Suspect]
     Active Substance: SECUKINUMAB
     Indication: Psoriatic arthropathy
     Dosage: FREQUENCY : MONTHLY;?
     Route: 058
     Dates: start: 20220505
  2. COSENTYX [Suspect]
     Active Substance: SECUKINUMAB
     Indication: Psoriasis

REACTIONS (4)
  - Syringe issue [None]
  - Drug delivery system malfunction [None]
  - Incorrect dose administered by device [None]
  - Device defective [None]
